FAERS Safety Report 5473294-1 (Version None)
Quarter: 2007Q4

REPORT INFORMATION
  Report Type: 
  Country: None (occurrence: None)
  Receive Date: 20071001
  Receipt Date: 20070919
  Transmission Date: 20080405
  Serious: Yes (Death)
  Sender: FDA-Public Use
  Company Number: US-GENENTECH-248056

PATIENT
  Age: 70 Year
  Sex: Female

DRUGS (1)
  1. AVASTIN [Suspect]
     Indication: BREAST CANCER
     Dosage: 5 MG/KG, 1/WEEK
     Dates: start: 20060101

REACTIONS (2)
  - CENTRAL NERVOUS SYSTEM INFLAMMATION [None]
  - VITH NERVE PARALYSIS [None]
